FAERS Safety Report 17833505 (Version 1)
Quarter: 2020Q2

REPORT INFORMATION
  Report Type: Spontaneous
  Country: US (occurrence: US)
  Receive Date: 20200527
  Receipt Date: 20200527
  Transmission Date: 20200714
  Serious: Yes (Other)
  Sender: FDA-Public Use
  Company Number: None

PATIENT
  Age: 56 Year
  Sex: Female
  Weight: 64 kg

DRUGS (20)
  1. NICOTINE TRANSDERMAL [Concomitant]
     Active Substance: NICOTINE
     Dates: start: 20200506, end: 20200514
  2. EPINEPRHRINE INFUSION [Concomitant]
     Dates: start: 20200513, end: 20200514
  3. ALBUMIN [Concomitant]
     Active Substance: ALBUMIN HUMAN
     Dates: start: 20200512, end: 20200514
  4. HYDROCORTISONE SODIUM SUCCINATE [Concomitant]
     Active Substance: HYDROCORTISONE SODIUM SUCCINATE
     Dates: start: 20200513, end: 20200514
  5. DOBUTAMINE INFUSION [Concomitant]
     Dates: start: 20200513, end: 20200514
  6. NOREPINEPHRINE INFUSION [Concomitant]
     Dates: start: 20200511, end: 20200514
  7. PHENYLEPHRINE INFUSION [Concomitant]
     Dates: start: 20200513, end: 20200514
  8. AMIODARONE [Concomitant]
     Active Substance: AMIODARONE
     Dates: start: 20200512, end: 20200514
  9. ENOXAPARIN SQ [Concomitant]
     Dates: start: 20200513, end: 20200514
  10. FAMOTIDINE. [Concomitant]
     Active Substance: FAMOTIDINE
     Dates: start: 20200513, end: 20200514
  11. THIAMINE. [Concomitant]
     Active Substance: THIAMINE
     Dates: start: 20200505, end: 20200514
  12. FOLIC ACID. [Concomitant]
     Active Substance: FOLIC ACID
     Dates: start: 20200505, end: 20200514
  13. KETAMINE INFUSION [Concomitant]
     Active Substance: KETAMINE
     Dates: start: 20200513, end: 20200514
  14. REMDESIVIR. [Suspect]
     Active Substance: REMDESIVIR
     Indication: COVID-19
     Route: 042
     Dates: start: 20200511, end: 20200513
  15. VASOPRESSIN INFUSION [Concomitant]
     Dates: start: 20200513, end: 20200514
  16. CYANOCOBALAMIN. [Concomitant]
     Active Substance: CYANOCOBALAMIN
     Dates: start: 20200511, end: 20200514
  17. HEPARIN SQ [Concomitant]
     Dates: start: 20200505, end: 20200513
  18. MIDODRINE [Concomitant]
     Active Substance: MIDODRINE
     Dates: start: 20200509, end: 20200512
  19. MULTIVITAMIN [Concomitant]
     Active Substance: VITAMINS
     Dates: start: 20200505, end: 20200514
  20. FENTANYL INFUSION [Concomitant]
     Active Substance: FENTANYL
     Dates: start: 20200513, end: 20200513

REACTIONS (11)
  - Abdominal distension [None]
  - Tissue infiltration [None]
  - Septic shock [None]
  - Intestinal ischaemia [None]
  - General physical health deterioration [None]
  - Intestinal dilatation [None]
  - Platelet count decreased [None]
  - Supraventricular tachycardia [None]
  - Lactic acidosis [None]
  - Haemoglobin decreased [None]
  - Neutrophil count decreased [None]

NARRATIVE: CASE EVENT DATE: 20200513
